FAERS Safety Report 6360608-3 (Version None)
Quarter: 2009Q3

REPORT INFORMATION
  Report Type: 
  Country: None (occurrence: None)
  Receive Date: 20090915
  Receipt Date: 20090904
  Transmission Date: 20100115
  Serious: Yes (Hospitalization)
  Sender: FDA-Public Use
  Company Number: 238635K09USA

PATIENT
  Age: 59 Year
  Sex: Female
  Weight: 58 kg

DRUGS (4)
  1. REBIF [Suspect]
     Indication: MULTIPLE SCLEROSIS
     Dosage: 3 IN 1 WEEKS, SUBCUTANEOUS
     Route: 058
     Dates: start: 20030909, end: 20090701
  2. CLONAZEPAM [Concomitant]
  3. PAROXETINE HCL [Concomitant]
  4. NEURONTIN [Concomitant]

REACTIONS (2)
  - FALL [None]
  - TREATMENT NONCOMPLIANCE [None]
